FAERS Safety Report 5683860-6 (Version None)
Quarter: 2008Q1

REPORT INFORMATION
  Report Type: 
  Country: None (occurrence: None)
  Receive Date: 20080328
  Receipt Date: 20080326
  Transmission Date: 20080703
  Serious: Yes (Other)
  Sender: FDA-Public Use
  Company Number: US-JNJFOC-20080302096

PATIENT
  Sex: Female
  Weight: 83.01 kg

DRUGS (3)
  1. INVEGA [Suspect]
  2. INVEGA [Suspect]
  3. INVEGA [Suspect]
     Indication: SCHIZOPHRENIA

REACTIONS (6)
  - ASTHENIA [None]
  - BRADYCARDIA [None]
  - CHEST DISCOMFORT [None]
  - DIZZINESS [None]
  - HEART RATE IRREGULAR [None]
  - SYNCOPE [None]
